FAERS Safety Report 18234425 (Version 1)
Quarter: 2020Q3

REPORT INFORMATION
  Report Type: Spontaneous
  Country: PL (occurrence: PL)
  Receive Date: 20200904
  Receipt Date: 20200904
  Transmission Date: 20201103
  Serious: Yes (Other)
  Sender: FDA-Public Use
  Company Number: PL-GUERBET-PL-20200033

PATIENT
  Age: 76 Year
  Sex: Female
  Weight: 64 kg

DRUGS (1)
  1. OPTIRAY 350 [Suspect]
     Active Substance: IOVERSOL
     Indication: PRODUCT USED FOR UNKNOWN INDICATION
     Route: 042
     Dates: start: 20171208, end: 20171208

REACTIONS (6)
  - Vomiting [Unknown]
  - Nausea [Unknown]
  - Mouth swelling [Unknown]
  - Pruritus [Unknown]
  - Eye pruritus [Unknown]
  - Cough [Unknown]

NARRATIVE: CASE EVENT DATE: 20171208
